FAERS Safety Report 5188278-0 (Version None)
Quarter: 2006Q4

REPORT INFORMATION
  Report Type: 
  Country: None (occurrence: None)
  Receive Date: 20061221
  Receipt Date: 20061215
  Transmission Date: 20070319
  Serious: Yes (Death, Hospitalization)
  Sender: FDA-Public Use
  Company Number: FR-GLAXOSMITHKLINE-B0451199A

PATIENT
  Age: 29 Year
  Sex: Male
  Weight: 64 kg

DRUGS (6)
  1. ZOFRAN [Suspect]
     Indication: NAUSEA
     Route: 065
     Dates: start: 20060724, end: 20060920
  2. SOLU-MEDROL [Suspect]
     Indication: NAUSEA
     Route: 065
     Dates: start: 20060724, end: 20060920
  3. ETOPOSIDE [Suspect]
     Dosage: 100MGM2 CYCLIC
     Route: 042
     Dates: start: 20060724, end: 20060908
  4. CISPLATIN [Suspect]
     Dosage: 20MGM2 CYCLIC
     Route: 042
     Dates: start: 20060724, end: 20060908
  5. BLEOMYCIN [Suspect]
     Dosage: 30MG CYCLIC
     Route: 042
     Dates: start: 20060724, end: 20060920
  6. AUGMENTIN '125' [Concomitant]
     Indication: UPPER RESPIRATORY TRACT INFECTION BACTERIAL
     Route: 065

REACTIONS (7)
  - DYSPNOEA [None]
  - HYPOXIA [None]
  - INTERSTITIAL LUNG DISEASE [None]
  - NEUTROPENIA [None]
  - PULMONARY FIBROSIS [None]
  - RESPIRATORY DISORDER [None]
  - UPPER RESPIRATORY TRACT INFECTION BACTERIAL [None]
